FAERS Safety Report 12315348 (Version 1)
Quarter: 2016Q2

REPORT INFORMATION
  Report Type: Spontaneous
  Country: US (occurrence: US)
  Receive Date: 20160428
  Receipt Date: 20160428
  Transmission Date: 20160815
  Serious: No
  Sender: FDA-Public Use
  Company Number: US-AKRIMAX-TIR-2016-0185

PATIENT
  Age: 69 Year
  Sex: Female
  Weight: 49.49 kg

DRUGS (5)
  1. TIROSINT [Suspect]
     Active Substance: LEVOTHYROXINE SODIUM
     Indication: HYPOTHYROIDISM
     Dosage: ONE CAPSULE DAILY
     Dates: start: 201512
  2. TIROSINT [Suspect]
     Active Substance: LEVOTHYROXINE SODIUM
     Dosage: ONE CAPSULE DAILY
     Route: 048
     Dates: start: 201512
  3. TIROSINT [Suspect]
     Active Substance: LEVOTHYROXINE SODIUM
     Indication: HYPOTHYROIDISM
     Dosage: ONE CAPSULE DAILY
     Route: 048
     Dates: start: 201511, end: 201512
  4. T3 [Concomitant]
     Active Substance: LIOTHYRONINE SODIUM
     Indication: PRODUCT USED FOR UNKNOWN INDICATION
     Dates: start: 2016
  5. TIROSINT [Suspect]
     Active Substance: LEVOTHYROXINE SODIUM
     Indication: HYPOTHYROIDISM
     Dosage: ONE CAPSULE DAILY
     Route: 048
     Dates: start: 201512, end: 201512

REACTIONS (9)
  - Skin wrinkling [Unknown]
  - Irritability [Unknown]
  - Feeling abnormal [Unknown]
  - Vulvovaginal dryness [Not Recovered/Not Resolved]
  - Vulvovaginal burning sensation [Not Recovered/Not Resolved]
  - Thyroid function test abnormal [Unknown]
  - Dry skin [Unknown]
  - Insomnia [Unknown]
  - Palpitations [Unknown]

NARRATIVE: CASE EVENT DATE: 201511
